FAERS Safety Report 23666138 (Version 2)
Quarter: 2024Q2

REPORT INFORMATION
  Report Type: Spontaneous
  Country: US (occurrence: US)
  Receive Date: 20240324
  Receipt Date: 20240413
  Transmission Date: 20240715
  Serious: Yes (Other)
  Sender: FDA-Public Use
  Company Number: US-AUROBINDO-AUR-APL-2024-012630

PATIENT
  Age: 59 Year
  Sex: Male

DRUGS (7)
  1. WARFARIN [Suspect]
     Active Substance: WARFARIN
     Indication: Thrombosis prophylaxis
     Dosage: UNK
     Route: 065
  2. ANCEF [Suspect]
     Active Substance: CEFAZOLIN SODIUM
     Indication: Prosthetic valve endocarditis
     Dosage: UNK
     Route: 065
  3. GENTAMICIN [Concomitant]
     Active Substance: GENTAMICIN
     Indication: Prosthetic valve endocarditis
     Dosage: UNK
     Route: 065
  4. HEPARIN [Concomitant]
     Active Substance: HEPARIN SODIUM
     Indication: Anticoagulant therapy
     Dosage: UNK
     Route: 065
  5. RIFAMPIN [Concomitant]
     Active Substance: RIFAMPIN
     Indication: Prosthetic valve endocarditis
     Dosage: UNK
     Route: 065
  6. ROCEPHIN [Concomitant]
     Active Substance: CEFTRIAXONE SODIUM
     Indication: Sepsis
     Dosage: UNK
     Route: 065
  7. VANCOMYCIN [Concomitant]
     Active Substance: VANCOMYCIN
     Indication: Sepsis
     Dosage: UNK
     Route: 065

REACTIONS (3)
  - Haemorrhage intracranial [Unknown]
  - International normalised ratio increased [Recovered/Resolved]
  - Drug ineffective [Unknown]
